FAERS Safety Report 6295253-1 (Version None)
Quarter: 2009Q4

REPORT INFORMATION
  Report Type: 
  Country: None (occurrence: None)
  Receive Date: 20090730
  Receipt Date: 20090714
  Transmission Date: 20100525
  Serious: Yes (Life-Threatening, Hospitalization)
  Sender: FDA-Public Use
  Company Number: B0583286A

PATIENT
  Sex: Female
  Weight: 59.8748 kg

DRUGS (4)
  1. WELLBUTRIN XL [Suspect]
     Indication: DRUG USE FOR UNKNOWN INDICATION
     Dosage: 90 TABLET / SINGLE DOSE /
  2. LORAZEPAM [Concomitant]
  3. TRAZODONE HYDROCHLORIDE [Concomitant]
  4. QUETIAPINE FUMARATE [Concomitant]

REACTIONS (4)
  - COMA [None]
  - CONVULSION [None]
  - RESPIRATORY ARREST [None]
  - SUICIDE ATTEMPT [None]
